FAERS Safety Report 8149147 (Version 2)
Quarter: 2013Q2

REPORT INFORMATION
  Report Type: Spontaneous
  Country: US (occurrence: US)
  Receive Date: 20110922
  Receipt Date: 20130405
  Transmission Date: 20140414
  Serious: Yes (Death, Other)
  Sender: FDA-Public Use
  Company Number: US-ASTRAZENECA-2011SE12619

PATIENT
  Age: 14688 Day
  Sex: Male

DRUGS (9)
  1. SEROQUEL [Suspect]
     Route: 048
     Dates: start: 20000217
  2. SEROQUEL [Suspect]
     Route: 048
     Dates: start: 20090208
  3. METHADONE [Suspect]
     Route: 065
  4. PAXIL [Concomitant]
     Route: 048
     Dates: start: 20081211
  5. PERCOCET [Concomitant]
     Indication: PAIN
     Dosage: 10/325 ONE TABLET TWO TO THREE TIMES A DAY AS NEEDED NOT EXCEED THREE TABLETS DAILY
     Route: 048
     Dates: start: 20071012
  6. TRAMADOL [Concomitant]
     Indication: PAIN
     Dosage: 50 - 100 MG, ONE TO TWO TABLETS DAILY
     Route: 048
     Dates: start: 20070703
  7. TRAZODONE [Concomitant]
     Dosage: 100 - 150 MG ONE TO TWO TABLETS DAILY
     Route: 048
     Dates: start: 20070507
  8. DEPAKOTE [Concomitant]
     Dates: start: 20000217
  9. RISPERDAL [Concomitant]
     Dates: start: 20000217

REACTIONS (5)
  - Overdose [Fatal]
  - Pancreatitis [Unknown]
  - Diabetic coma [Unknown]
  - Type 2 diabetes mellitus [Unknown]
  - Impaired fasting glucose [Unknown]
